FAERS Safety Report 22383984 (Version 3)
Quarter: 2025Q1

REPORT INFORMATION
  Report Type: Spontaneous
  Country: US (occurrence: US)
  Receive Date: 20230530
  Receipt Date: 20250320
  Transmission Date: 20250409
  Serious: Yes (Hospitalization, Other)
  Sender: BAYER HEALTHCARE PHARMACEUTICALS INC.
  Company Number: US-BAYER-2023A071358

PATIENT
  Age: 56 Year
  Sex: Female
  Weight: 82.7 kg

DRUGS (4)
  1. MIRENA [Suspect]
     Active Substance: LEVONORGESTREL
     Indication: Contraception
     Dosage: 20?G/DAY
     Route: 015
     Dates: start: 20160825, end: 20220601
  2. MIRENA [Suspect]
     Active Substance: LEVONORGESTREL
     Indication: Heavy menstrual bleeding
  3. COZAAR [Concomitant]
     Active Substance: LOSARTAN POTASSIUM
  4. NORVASC [Concomitant]
     Active Substance: AMLODIPINE BESYLATE
     Dosage: 5 MG, QD
     Route: 048
     Dates: start: 2016

REACTIONS (7)
  - Uterine perforation [Recovered/Resolved]
  - Pelvic pain [None]
  - Depression [None]
  - Hot flush [None]
  - Vulvovaginal burning sensation [None]
  - Abdominal pain [None]
  - Complication of device removal [None]

NARRATIVE: CASE EVENT DATE: 20160825
